FAERS Safety Report 5982555-9 (Version None)
Quarter: 2008Q4

REPORT INFORMATION
  Report Type: 
  Country: None (occurrence: None)
  Receive Date: 20081208
  Receipt Date: 20081126
  Transmission Date: 20090506
  Serious: Yes (Hospitalization, Other)
  Sender: FDA-Public Use
  Company Number: PHHY2008DE30352

PATIENT
  Age: 36 Year
  Sex: Male

DRUGS (6)
  1. SANDOSTATIN LAR [Suspect]
     Indication: ACROMEGALY
     Dosage: 10 MG, QMO
  2. SANDOSTATIN LAR [Suspect]
     Dosage: 20 MG, QMO
  3. CORTISONACETAT [Concomitant]
     Dosage: 12.5 MG, BID
  4. CORTISONACETAT [Concomitant]
     Dosage: 12.5 MG, QD
     Dates: end: 20060901
  5. CABERGOLINE [Concomitant]
     Indication: HYPERPROLACTINAEMIA
     Dosage: 1.5 TO 2/ WEEK
  6. L-THYROXIN ^HENNING BERLIN^ [Concomitant]
     Dosage: 125

REACTIONS (4)
  - INSULIN-LIKE GROWTH FACTOR INCREASED [None]
  - OSTEOPENIA [None]
  - SURGERY [None]
  - THYROIDECTOMY [None]
